FAERS Safety Report 23674963 (Version 1)
Quarter: 2024Q1

REPORT INFORMATION
  Report Type: Spontaneous
  Country: FR (occurrence: FR)
  Receive Date: 20240326
  Receipt Date: 20240326
  Transmission Date: 20240409
  Serious: Yes (Death, Other)
  Sender: FDA-Public Use
  Company Number: None

PATIENT

DRUGS (1)
  1. DEFITELIO [Suspect]
     Active Substance: DEFIBROTIDE SODIUM
     Indication: Venoocclusive liver disease
     Dosage: 6.25 MILLIGRAM/KILOGRAM, QID
     Route: 042
     Dates: start: 20240229, end: 20240309

REACTIONS (1)
  - Rectal haemorrhage [Fatal]

NARRATIVE: CASE EVENT DATE: 20240309
